FAERS Safety Report 21144310 (Version 1)
Quarter: 2022Q3

REPORT INFORMATION
  Report Type: Spontaneous
  Country: US (occurrence: None)
  Receive Date: 20220728
  Receipt Date: 20220728
  Transmission Date: 20221027
  Serious: Yes (Other)
  Sender: FDA-Public Use
  Company Number: None

PATIENT
  Age: 54 Year
  Sex: Male
  Weight: 143.6 kg

DRUGS (7)
  1. BEBTELOVIMAB [Suspect]
     Active Substance: BEBTELOVIMAB
     Indication: COVID-19
     Route: 040
     Dates: start: 20220728, end: 20220728
  2. amiodarone 400mg q12h [Concomitant]
     Dates: start: 20220727
  3. atorvastatin 20mg qd [Concomitant]
     Dates: start: 20220727
  4. bupropion XL 150mg qd [Concomitant]
     Dates: start: 20220728
  5. metoprolol 50mg q8h [Concomitant]
     Dates: start: 20220728
  6. pantoprazole 40mg qd [Concomitant]
     Dates: start: 20220728
  7. rivaroxaban 20mg qd [Concomitant]
     Dates: start: 20220727

REACTIONS (8)
  - Cold sweat [None]
  - Fatigue [None]
  - Fatigue [None]
  - Dizziness [None]
  - Palpitations [None]
  - Dyspepsia [None]
  - Atrial fibrillation [None]
  - COVID-19 [None]

NARRATIVE: CASE EVENT DATE: 20220728
